FAERS Safety Report 10530009 (Version 1)
Quarter: 2014Q4

REPORT INFORMATION
  Report Type: Spontaneous
  Country: KR (occurrence: KR)
  Receive Date: 20141021
  Receipt Date: 20141021
  Transmission Date: 20150528
  Serious: Yes (Hospitalization)
  Sender: FDA-Public Use
  Company Number: KR-ROCHE-1477257

PATIENT
  Age: 62 Year
  Sex: Male

DRUGS (11)
  1. PHENYTOIN. [Concomitant]
     Active Substance: PHENYTOIN
     Route: 065
  2. SULPIRIDE [Suspect]
     Active Substance: SULPIRIDE
     Indication: PERSONALITY CHANGE
  3. CLONAZEPAM. [Suspect]
     Active Substance: CLONAZEPAM
     Indication: AGGRESSION
     Route: 065
  4. CLONAZEPAM. [Suspect]
     Active Substance: CLONAZEPAM
     Indication: PERSONALITY CHANGE
  5. AMITRIPTYLINE [Suspect]
     Active Substance: AMITRIPTYLINE
     Indication: AGGRESSION
     Route: 065
  6. PERPHENAZINE. [Suspect]
     Active Substance: PERPHENAZINE
     Indication: AGGRESSION
     Route: 065
  7. PERPHENAZINE. [Suspect]
     Active Substance: PERPHENAZINE
     Indication: PERSONALITY CHANGE
  8. LORAZEPAM. [Suspect]
     Active Substance: LORAZEPAM
     Indication: AGGRESSION
     Route: 065
  9. AMITRIPTYLINE [Suspect]
     Active Substance: AMITRIPTYLINE
     Indication: PERSONALITY CHANGE
  10. SULPIRIDE [Suspect]
     Active Substance: SULPIRIDE
     Indication: AGGRESSION
     Route: 065
  11. LORAZEPAM. [Suspect]
     Active Substance: LORAZEPAM
     Indication: PERSONALITY CHANGE

REACTIONS (1)
  - Parkinsonism [Unknown]
